FAERS Safety Report 24311367 (Version 1)
Quarter: 2024Q3

REPORT INFORMATION
  Report Type: Spontaneous
  Country: FR (occurrence: FR)
  Receive Date: 20240912
  Receipt Date: 20240912
  Transmission Date: 20241017
  Serious: Yes (Other)
  Sender: MYLAN
  Company Number: FR-MYLANLABS-2024M1082490

PATIENT
  Age: 66 Year
  Sex: Female

DRUGS (16)
  1. DOXORUBICIN [Suspect]
     Active Substance: DOXORUBICIN
     Indication: Grey zone lymphoma
     Dosage: UNK UNK, CYCLE, R-CHOP THERAPY 2 CYCLES
     Route: 065
  2. PREDNISONE [Suspect]
     Active Substance: PREDNISONE
     Indication: Grey zone lymphoma
     Dosage: UNK, CYCLE, R-CHOP THERAPY 2 CYCLES
     Route: 065
  3. PREDNISONE [Suspect]
     Active Substance: PREDNISONE
     Dosage: UNK, CYCLE, COP THERAPY 1 CYCLE
     Route: 065
  4. DEXAMETHASONE [Suspect]
     Active Substance: DEXAMETHASONE
     Indication: Grey zone lymphoma
     Dosage: UNK, CYCLE, R-DHAOX THERAPY 3 CYCLES
     Route: 065
  5. CYTARABINE [Suspect]
     Active Substance: CYTARABINE
     Indication: Grey zone lymphoma
     Dosage: UNK, CYCLE, R-DHAOX THERAPY 3 CYCLES
     Route: 065
  6. OXALIPLATIN [Suspect]
     Active Substance: OXALIPLATIN
     Indication: Grey zone lymphoma
     Dosage: UNK, CYCLE, R-DHAOX THERAPY 3 CYCLES
     Route: 065
  7. IFOSFAMIDE [Suspect]
     Active Substance: IFOSFAMIDE
     Indication: Grey zone lymphoma
     Dosage: ICE THERAPY
     Route: 065
  8. CARBOPLATIN [Suspect]
     Active Substance: CARBOPLATIN
     Indication: Grey zone lymphoma
     Dosage: ICE THERAPY
     Route: 065
  9. ETOPOSIDE [Suspect]
     Active Substance: ETOPOSIDE
     Indication: Grey zone lymphoma
     Dosage: ICE THERAPY
     Route: 065
  10. RITUXIMAB [Suspect]
     Active Substance: RITUXIMAB
     Indication: Grey zone lymphoma
     Dosage: UNK UNK, CYCLE, R-CHOP THERAPY 2 CYCLES
     Route: 065
  11. RITUXIMAB [Suspect]
     Active Substance: RITUXIMAB
     Dosage: UNK UNK, CYCLE, R-DHAOX THERAPY 3 CYCLES
     Route: 065
  12. CYCLOPHOSPHAMIDE [Suspect]
     Active Substance: CYCLOPHOSPHAMIDE
     Indication: Grey zone lymphoma
     Dosage: UNK, CYCLE, R-CHOP THERAPY 2 CYCLES
     Route: 065
  13. CYCLOPHOSPHAMIDE [Suspect]
     Active Substance: CYCLOPHOSPHAMIDE
     Dosage: UNK, CYCLE, COP THERAPY 1 CYCLE
     Route: 065
  14. VINCRISTINE [Suspect]
     Active Substance: VINCRISTINE
     Indication: Grey zone lymphoma
     Dosage: UNK, CYCLE, R-CHOP THERAPY 2 CYCLES
     Route: 065
  15. VINCRISTINE [Suspect]
     Active Substance: VINCRISTINE
     Dosage: UNK, CYCLE, COP THERAPY 1 CYCLE
     Route: 065
  16. BRENTUXIMAB VEDOTIN [Suspect]
     Active Substance: BRENTUXIMAB VEDOTIN
     Indication: Grey zone lymphoma
     Dosage: UNK
     Route: 065

REACTIONS (2)
  - Drug ineffective [Unknown]
  - Disease progression [Unknown]
